FAERS Safety Report 10209944 (Version 8)
Quarter: 2014Q3

REPORT INFORMATION
  Report Type: Spontaneous
  Country: US (occurrence: US)
  Receive Date: 20140602
  Receipt Date: 20140809
  Transmission Date: 20150326
  Serious: Yes (Death, Other)
  Sender: FDA-Public Use
  Company Number: PHEH2012US026125

PATIENT
  Age: 66 Year
  Sex: Female

DRUGS (13)
  1. AREDIA [Suspect]
     Active Substance: PAMIDRONATE DISODIUM
     Indication: METASTASES TO BONE
     Dosage: UNK UKN, UNK
     Route: 041
     Dates: start: 2000, end: 2011
  2. MORPHINE [Concomitant]
     Active Substance: MORPHINE
  3. TAMOXIFEN [Concomitant]
     Active Substance: TAMOXIFEN
  4. AVASTIN [Concomitant]
     Active Substance: BEVACIZUMAB
  5. ZOMETA [Suspect]
     Active Substance: ZOLEDRONIC ACID
     Indication: METASTASES TO BONE
  6. SPIRONOLACTONE. [Concomitant]
     Active Substance: SPIRONOLACTONE
  7. PROTONEX [Concomitant]
  8. OXYCONTIN [Concomitant]
     Active Substance: OXYCODONE HYDROCHLORIDE
  9. XELODA [Concomitant]
     Active Substance: CAPECITABINE
  10. FASLODEX [Concomitant]
     Active Substance: FULVESTRANT
  11. TAXOL [Concomitant]
     Active Substance: PACLITAXEL
  12. ZOMETA [Suspect]
     Active Substance: ZOLEDRONIC ACID
     Indication: BREAST CANCER METASTATIC
     Dosage: 4 MG, QMO
     Route: 042
     Dates: start: 2000, end: 20110517
  13. AROMASIN [Concomitant]
     Active Substance: EXEMESTANE

REACTIONS (200)
  - Osteolysis [Unknown]
  - Breast cancer metastatic [Unknown]
  - Osteosclerosis [Unknown]
  - Fracture [Unknown]
  - Gastrooesophageal reflux disease [Unknown]
  - Arthropathy [Unknown]
  - Bursitis [Unknown]
  - Neck mass [Unknown]
  - Wound [Unknown]
  - Liver disorder [Unknown]
  - Metastases to spine [Unknown]
  - Bone cyst [Unknown]
  - Metastases to liver [Unknown]
  - Palpitations [Unknown]
  - Paraesthesia [Unknown]
  - Bone pain [Unknown]
  - Macrocytosis [Unknown]
  - Decreased appetite [Unknown]
  - Weight bearing difficulty [Unknown]
  - Abdominal distension [Unknown]
  - Infection [Unknown]
  - Facet joint syndrome [Unknown]
  - Pelvic pain [Recovering/Resolving]
  - Dehydration [Unknown]
  - Dysphagia [Unknown]
  - Eye pruritus [Unknown]
  - Osteomyelitis [Unknown]
  - Subcutaneous abscess [Unknown]
  - Muscle strain [Unknown]
  - Hepatic lesion [Unknown]
  - Fistula discharge [Unknown]
  - Pelvic fracture [Unknown]
  - Atelectasis [Unknown]
  - Primary sequestrum [Unknown]
  - Neutropenia [Unknown]
  - Confusional state [Unknown]
  - Temperature intolerance [Unknown]
  - Cough [Unknown]
  - Diarrhoea [Unknown]
  - Death [Fatal]
  - Deformity [Unknown]
  - Anxiety [Unknown]
  - Palmar-plantar erythrodysaesthesia syndrome [Unknown]
  - Metastases to bone [Unknown]
  - Anaemia [Unknown]
  - Scoliosis [Unknown]
  - Lumbar spinal stenosis [Unknown]
  - Skin exfoliation [Unknown]
  - Arthralgia [Unknown]
  - Mononeuritis [Unknown]
  - Dermatophytosis [Unknown]
  - Osteopenia [Unknown]
  - Lung hyperinflation [Unknown]
  - Tachycardia [Unknown]
  - Bronchial carcinoma [Unknown]
  - Apnoea [Unknown]
  - Urinary retention [Unknown]
  - Incontinence [Unknown]
  - Malnutrition [Unknown]
  - Loose tooth [Unknown]
  - Abscess jaw [Unknown]
  - Contusion [Unknown]
  - Adrenal adenoma [Unknown]
  - Cerebral small vessel ischaemic disease [Unknown]
  - Excessive granulation tissue [Unknown]
  - Vision blurred [Unknown]
  - Night blindness [Unknown]
  - Abdominal hernia [Unknown]
  - Hip fracture [Unknown]
  - Joint destruction [Unknown]
  - Stomatitis [Unknown]
  - Spondylolisthesis [Unknown]
  - Nausea [Unknown]
  - Muscular weakness [Unknown]
  - Joint range of motion decreased [Unknown]
  - Chest pain [Unknown]
  - Pain [Unknown]
  - Overdose [Unknown]
  - Cancer in remission [Unknown]
  - Spinal compression fracture [Unknown]
  - Emphysema [Unknown]
  - Clavicle fracture [Unknown]
  - Thrombocytopenia [Unknown]
  - Metastases to ovary [Unknown]
  - Iron deficiency anaemia [Unknown]
  - Bone lesion [Unknown]
  - Toothache [Unknown]
  - Gingival swelling [Unknown]
  - Breath sounds abnormal [Unknown]
  - Agitation [Unknown]
  - Exposed bone in jaw [Unknown]
  - Swelling face [Unknown]
  - Resorption bone increased [Unknown]
  - Diabetes mellitus [Unknown]
  - Gout [Unknown]
  - Neuropathy peripheral [Unknown]
  - Dysgeusia [Unknown]
  - Metastasis [Unknown]
  - Hypokalaemia [Unknown]
  - Erythema [Unknown]
  - Asthenia [Unknown]
  - Malaise [Unknown]
  - Rash [Unknown]
  - Musculoskeletal pain [Unknown]
  - Injury [Unknown]
  - Emotional distress [Unknown]
  - Hypertension [Unknown]
  - Chronic obstructive pulmonary disease [Unknown]
  - Spinal pain [Unknown]
  - Nerve root compression [Unknown]
  - Local swelling [Unknown]
  - Lung infiltration [Unknown]
  - Laceration [Unknown]
  - Decubitus ulcer [Unknown]
  - Candida infection [Unknown]
  - Tooth loss [Unknown]
  - Depression [Unknown]
  - Neoplasm [Unknown]
  - Soft tissue infection [Unknown]
  - Inflammation [Unknown]
  - Bone fragmentation [Unknown]
  - Visual impairment [Unknown]
  - Asthenopia [Unknown]
  - Photophobia [Unknown]
  - Stitch abscess [Unknown]
  - Cardiac murmur [Unknown]
  - Glucose tolerance impaired [Unknown]
  - Groin pain [Unknown]
  - Limb deformity [Unknown]
  - Osteonecrosis of jaw [Unknown]
  - Physical disability [Unknown]
  - Osteoarthritis [Unknown]
  - Rhonchi [Unknown]
  - Joint swelling [Unknown]
  - Essential hypertension [Unknown]
  - Fungal infection [Unknown]
  - Wheezing [Unknown]
  - Femur fracture [Unknown]
  - Urticaria [Unknown]
  - Lung neoplasm malignant [Unknown]
  - Cachexia [Unknown]
  - Bone fissure [Unknown]
  - Respiratory distress [Unknown]
  - Gingival abscess [Unknown]
  - Panic attack [Unknown]
  - Oral discomfort [Unknown]
  - Tobacco abuse [Unknown]
  - Abscess [Unknown]
  - Abdominal pain [Unknown]
  - Pain in extremity [Unknown]
  - Skin abrasion [Unknown]
  - Osteoporosis [Unknown]
  - Fall [Unknown]
  - Pain in jaw [Unknown]
  - Dyspnoea [Unknown]
  - Bone swelling [Unknown]
  - Feeding tube complication [Unknown]
  - Wound secretion [Unknown]
  - Dry eye [Unknown]
  - Bradycardia [Unknown]
  - Hallucination [Unknown]
  - Musculoskeletal stiffness [Unknown]
  - Cellulitis [Unknown]
  - Mental status changes [Unknown]
  - Pseudoepitheliomatous hyperplasia [Unknown]
  - Skin lesion [Unknown]
  - Claustrophobia [Unknown]
  - Tooth infection [Unknown]
  - Back pain [Unknown]
  - Abdominal discomfort [Unknown]
  - Lethargy [Unknown]
  - Pulmonary mass [Unknown]
  - Epistaxis [Unknown]
  - Breast mass [Unknown]
  - Spinal osteoarthritis [Unknown]
  - Upper respiratory tract infection [Recovered/Resolved]
  - Oral candidiasis [Unknown]
  - Tooth abscess [Unknown]
  - Gingivitis [Unknown]
  - Dental caries [Unknown]
  - Purulent discharge [Unknown]
  - Ecchymosis [Unknown]
  - Arthritis [Unknown]
  - Skin infection [Unknown]
  - Rib fracture [Unknown]
  - Pathological fracture [Unknown]
  - Bone erosion [Unknown]
  - Bacterial disease carrier [Unknown]
  - Thyroid disorder [Unknown]
  - Visual field defect [Unknown]
  - Incisional hernia [Unknown]
  - Wound haematoma [Unknown]
  - Post procedural haematoma [Unknown]
  - Hyperaemia [Unknown]
  - Leukopenia [Unknown]
  - Eye irritation [Unknown]
  - Gait disturbance [Unknown]
  - Fatigue [Unknown]
  - Abdominal tenderness [Unknown]
  - Mastication disorder [Unknown]

NARRATIVE: CASE EVENT DATE: 2002
